FAERS Safety Report 25379808 (Version 1)
Quarter: 2025Q2

REPORT INFORMATION
  Report Type: Spontaneous
  Country: US (occurrence: US)
  Receive Date: 20250530
  Receipt Date: 20250530
  Transmission Date: 20250716
  Serious: No
  Sender: BAYER HEALTHCARE LLC
  Company Number: US-BAYER-2025A068065

PATIENT
  Age: 68 Year
  Sex: Female

DRUGS (3)
  1. CLARITIN [Suspect]
     Active Substance: LORATADINE
     Indication: Hypersensitivity
     Route: 048
     Dates: start: 20250507, end: 20250519
  2. CLARITIN [Suspect]
     Active Substance: LORATADINE
     Indication: Nasopharyngitis
  3. GANCICLOVIR [Concomitant]
     Active Substance: GANCICLOVIR

REACTIONS (2)
  - Poor quality product administered [Unknown]
  - Product quality issue [None]

NARRATIVE: CASE EVENT DATE: 20250507
